FAERS Safety Report 9371588 (Version 2)
Quarter: 2013Q3

REPORT INFORMATION
  Report Type: Report from Study
  Country: TR (occurrence: TR)
  Receive Date: 20130627
  Receipt Date: 20130716
  Transmission Date: 20140515
  Serious: Yes (Hospitalization)
  Sender: FDA-Public Use
  Company Number: PHHY2013TR027852

PATIENT
  Age: 15 Year
  Sex: Male
  Weight: 41 kg

DRUGS (5)
  1. EXJADE [Suspect]
     Indication: ACUTE LYMPHOCYTIC LEUKAEMIA
     Dosage: 1250 MG,DAILY
     Route: 048
     Dates: start: 2011
  2. EXJADE [Suspect]
     Dosage: 1250 MG,DAILY
     Route: 048
     Dates: end: 20130604
  3. MERCAPTOPURINE [Concomitant]
     Dosage: 1 TABLET FOR 4 DAYS/1.5 TABLETS FOR 3 DAYS
     Route: 048
     Dates: start: 2012
  4. METHOTREXATE [Concomitant]
     Dosage: 10 DF, ONCE WEEKLY
     Dates: start: 2012
  5. BACTRIM [Concomitant]
     Dosage: 1 DF, 3 TIMES WEEKLY
     Route: 048
     Dates: start: 2012

REACTIONS (4)
  - Mouth ulceration [Not Recovered/Not Resolved]
  - Malnutrition [Not Recovered/Not Resolved]
  - Blood count abnormal [Recovered/Resolved]
  - Serum ferritin increased [Unknown]
